FAERS Safety Report 4439534-2 (Version None)
Quarter: 2004Q3

REPORT INFORMATION
  Report Type: 
  Country: None (occurrence: None)
  Receive Date: 20040830
  Receipt Date: 20040813
  Transmission Date: 20050211
  Serious: Yes (Death)
  Sender: FDA-Public Use
  Company Number: 04P-260-0270779-00

PATIENT
  Age: 17 Year
  Sex: Female

DRUGS (1)
  1. ISOPTIN SR [Suspect]
     Indication: ACCIDENTAL OVERDOSE
     Dosage: 240 MG, 8 IN 1 ONCE, PER ORAL
     Route: 048
     Dates: start: 20020101, end: 20020101

REACTIONS (1)
  - ACCIDENTAL OVERDOSE [None]
